FAERS Safety Report 18162100 (Version 2)
Quarter: 2021Q3

REPORT INFORMATION
  Report Type: Spontaneous
  Country: US (occurrence: US)
  Receive Date: 20200818
  Receipt Date: 20210802
  Transmission Date: 20211014
  Serious: No
  Sender: FDA-Public Use
  Company Number: US-SA-2020SA212705

PATIENT
  Age: 58 Year
  Sex: Female
  Weight: 73 kg

DRUGS (6)
  1. VITAMIN C [Concomitant]
     Active Substance: ASCORBIC ACID
  2. CALCIUM [Concomitant]
     Active Substance: CALCIUM
  3. HYDROXYZINE HCL [Concomitant]
     Active Substance: HYDROXYZINE HYDROCHLORIDE
  4. DUPIXENT [Suspect]
     Active Substance: DUPILUMAB
     Indication: DERMATITIS ATOPIC
     Dosage: 600 MG, 1X
     Route: 058
     Dates: start: 20200812, end: 20200812
  5. DUPIXENT [Suspect]
     Active Substance: DUPILUMAB
     Dosage: 300 MG, QOW
     Route: 058
  6. DAILY VITE [ASCORBIC ACID;CALCIUM PANTOTHENATE;COLECALCIFEROL;CYANOCOB [Concomitant]

REACTIONS (4)
  - Product preparation error [Unknown]
  - Rash [Unknown]
  - Injection site pain [Unknown]
  - Device difficult to use [Unknown]

NARRATIVE: CASE EVENT DATE: 20200812
